FAERS Safety Report 9270761 (Version 3)
Quarter: 2013Q2

REPORT INFORMATION
  Report Type: Spontaneous
  Country: DE (occurrence: DE)
  Receive Date: 20130506
  Receipt Date: 20130612
  Transmission Date: 20140414
  Serious: Yes (Other)
  Sender: FDA-Public Use
  Company Number: DE-AMGEN-DEUSP2013030331

PATIENT
  Age: 70 Year
  Sex: Male
  Weight: 87 kg

DRUGS (10)
  1. VECTIBIX [Suspect]
     Indication: COLORECTAL CANCER METASTATIC
     Dosage: 522 MG, 2X
     Route: 042
     Dates: start: 20130218, end: 20130304
  2. LEUCOVORIN                         /00566701/ [Concomitant]
     Indication: CHEMOTHERAPY
     Dosage: 400 MG, D1 D2
     Route: 042
     Dates: start: 20130218, end: 20130304
  3. 5-FLUOROURACIL                     /00098801/ [Concomitant]
     Indication: CHEMOTHERAPY
     Dosage: 800 MG, D1D2
     Route: 042
     Dates: start: 20130218, end: 20130304
  4. 5-FLUOROURACIL                     /00098801/ [Concomitant]
     Dosage: 1200 MG, D1D2
     Route: 042
     Dates: start: 20130218, end: 20130304
  5. OXALIPLATIN [Concomitant]
     Indication: CHEMOTHERAPY
     Dosage: 170 MG, D1
     Route: 042
     Dates: start: 20130218, end: 20130304
  6. DOXYCYCLINE [Concomitant]
     Dosage: 100 MG, 2X1
     Route: 048
     Dates: start: 20130217, end: 20130314
  7. XARELTO [Concomitant]
     Indication: PROPHYLAXIS
     Dosage: UNK, 1X1
  8. XARELTO [Concomitant]
     Indication: HYPERTENSION
  9. BISOPROLOL [Concomitant]
     Indication: HYPERTENSION
     Dosage: UNK, 1X1
     Route: 048
  10. METFORMIN [Concomitant]
     Indication: DIABETES MELLITUS
     Dosage: UNK, 2X1
     Route: 048

REACTIONS (4)
  - Skin toxicity [Recovered/Resolved]
  - Pain of skin [Recovered/Resolved]
  - Dermatitis exfoliative [Recovered/Resolved]
  - Swelling face [Recovered/Resolved]
